FAERS Safety Report 26082926 (Version 1)
Quarter: 2025Q4

REPORT INFORMATION
  Report Type: Spontaneous
  Country: US (occurrence: US)
  Receive Date: 20251124
  Receipt Date: 20251124
  Transmission Date: 20260118
  Serious: Yes (Other)
  Sender: CHEPLAPHARM
  Company Number: US-CHEPLA-2025013239

PATIENT
  Age: 69 Year
  Sex: Female

DRUGS (16)
  1. VALGANCICLOVIR [Suspect]
     Active Substance: VALGANCICLOVIR
     Indication: Uveitis
     Dosage: 900 MG BID?DAILY DOSE: 1800 MILLIGRAM
     Route: 048
  2. VALGANCICLOVIR [Suspect]
     Active Substance: VALGANCICLOVIR
     Indication: Cytomegalovirus infection
     Dosage: 900 MG BID?DAILY DOSE: 1800 MILLIGRAM
     Route: 048
  3. VALGANCICLOVIR [Suspect]
     Active Substance: VALGANCICLOVIR
     Indication: Uveitis
     Dosage: 450 MG BID?DAILY DOSE: 900 MILLIGRAM
     Route: 048
  4. VALGANCICLOVIR [Suspect]
     Active Substance: VALGANCICLOVIR
     Indication: Cytomegalovirus infection
     Dosage: 450 MG BID?DAILY DOSE: 900 MILLIGRAM
     Route: 048
  5. VALGANCICLOVIR [Suspect]
     Active Substance: VALGANCICLOVIR
     Indication: Uveitis
     Dosage: INCREASED BACK; BID?DAILY DOSE: 1800 MILLIGRAM
     Route: 048
  6. VALGANCICLOVIR [Suspect]
     Active Substance: VALGANCICLOVIR
     Indication: Cytomegalovirus infection
     Dosage: INCREASED BACK; BID?DAILY DOSE: 1800 MILLIGRAM
     Route: 048
  7. VALGANCICLOVIR [Suspect]
     Active Substance: VALGANCICLOVIR
     Indication: Uveitis
     Dosage: DAILY DOSE: 900 MILLIGRAM
     Route: 048
  8. VALGANCICLOVIR [Suspect]
     Active Substance: VALGANCICLOVIR
     Indication: Cytomegalovirus infection
     Dosage: DAILY DOSE: 900 MILLIGRAM
     Route: 048
  9. DIFLUPREDNATE [Suspect]
     Active Substance: DIFLUPREDNATE
     Indication: Cytomegalovirus infection
     Dosage: QID OS
  10. DIFLUPREDNATE [Suspect]
     Active Substance: DIFLUPREDNATE
     Indication: Uveitis
     Dosage: QID OS
  11. DIFLUPREDNATE [Suspect]
     Active Substance: DIFLUPREDNATE
     Indication: Cytomegalovirus infection
     Dosage: DIFLUPREDNATE BID OS
  12. DIFLUPREDNATE [Suspect]
     Active Substance: DIFLUPREDNATE
     Indication: Uveitis
     Dosage: DIFLUPREDNATE BID OS
  13. DIFLUPREDNATE [Suspect]
     Active Substance: DIFLUPREDNATE
     Indication: Cytomegalovirus infection
     Dosage: TAPER THE DIFLUPREDNATE 0.05 % TO BID
  14. DIFLUPREDNATE [Suspect]
     Active Substance: DIFLUPREDNATE
     Indication: Uveitis
     Dosage: TAPER THE DIFLUPREDNATE 0.05 % TO BID
  15. DIFLUPREDNATE [Suspect]
     Active Substance: DIFLUPREDNATE
     Indication: Cytomegalovirus infection
     Dosage: BACK TO QID OS
  16. DIFLUPREDNATE [Suspect]
     Active Substance: DIFLUPREDNATE
     Indication: Uveitis
     Dosage: BACK TO QID OS

REACTIONS (3)
  - Diffuse large B-cell lymphoma [Recovered/Resolved]
  - Eye inflammation [Recovered/Resolved]
  - Off label use [Not Recovered/Not Resolved]
